FAERS Safety Report 12622199 (Version 1)
Quarter: 2016Q3

REPORT INFORMATION
  Report Type: Spontaneous
  Country: IN (occurrence: IN)
  Receive Date: 20160804
  Receipt Date: 20160804
  Transmission Date: 20161109
  Serious: Yes (Other)
  Sender: FDA-Public Use
  Company Number: IN-MYLANLABS-2016M1031871

PATIENT

DRUGS (1)
  1. RIFAMPICIN [Suspect]
     Active Substance: RIFAMPIN
     Indication: JOINT TUBERCULOSIS
     Dosage: UNK
     Route: 065

REACTIONS (3)
  - Vitamin D deficiency [Unknown]
  - Hypocalcaemic seizure [Unknown]
  - Femoral neck fracture [Unknown]
